FAERS Safety Report 9866846 (Version 1)
Quarter: 2014Q1

REPORT INFORMATION
  Report Type: Spontaneous
  Country: US (occurrence: None)
  Receive Date: 20140203
  Receipt Date: 20140203
  Transmission Date: 20141002
  Serious: Yes (Other)
  Sender: FDA-Public Use
  Company Number: None

PATIENT
  Age: 39 Year
  Sex: Female
  Weight: 115.67 kg

DRUGS (1)
  1. DULOXETINE [Suspect]
     Indication: DEPRESSION
     Dosage: TAKEN BY MOUTH
     Route: 048
     Dates: start: 20131204, end: 20130110

REACTIONS (5)
  - Abnormal dreams [None]
  - Anxiety [None]
  - Suicidal ideation [None]
  - Product quality issue [None]
  - Product substitution issue [None]
